FAERS Safety Report 5954046-2 (Version None)
Quarter: 2008Q4

REPORT INFORMATION
  Report Type: 
  Country: None (occurrence: None)
  Receive Date: 20081114
  Receipt Date: 20081105
  Transmission Date: 20090506
  Serious: Yes (Other)
  Sender: FDA-Public Use
  Company Number: US-PFIZER INC-2008094451

PATIENT
  Sex: Male
  Weight: 100 kg

DRUGS (2)
  1. DILANTIN [Suspect]
     Indication: CONVULSION
  2. PHENOBARBITAL TAB [Concomitant]

REACTIONS (2)
  - ASTHENIA [None]
  - CONVULSION [None]
